FAERS Safety Report 7173436-6 (Version None)
Quarter: 2010Q4

REPORT INFORMATION
  Report Type: 
  Country: None (occurrence: None)
  Receive Date: 20101215
  Receipt Date: 20101215
  Transmission Date: 20110411
  Serious: No
  Sender: FDA-Public Use
  Company Number: None

PATIENT
  Sex: Female

DRUGS (1)
  1. ANCEF [Suspect]
     Indication: INFECTION PROPHYLAXIS
     Dosage: 1G Q8H IV
     Route: 042
     Dates: start: 20101213, end: 20101216

REACTIONS (2)
  - DRUG PRESCRIBING ERROR [None]
  - MEDICATION ERROR [None]
